FAERS Safety Report 12888135 (Version 1)
Quarter: 2016Q4

REPORT INFORMATION
  Report Type: Other
  Country: GB (occurrence: IN)
  Receive Date: 20161027
  Receipt Date: 20161027
  Transmission Date: 20170207
  Serious: Yes (Hospitalization, Other)
  Sender: FDA-Public Use
  Company Number: IN-CLARIS PHARMASERVICES-1058932

PATIENT
  Age: 45 Year
  Sex: Male

DRUGS (2)
  1. ONDANSETRON HYDROCHLORIDE. [Suspect]
     Active Substance: ONDANSETRON HYDROCHLORIDE
     Indication: NAUSEA
     Route: 042
  2. PARACETAMOL [Concomitant]
     Active Substance: ACETAMINOPHEN
     Route: 030

REACTIONS (3)
  - Muscular weakness [Recovered/Resolved]
  - Electrocardiogram change [Recovered/Resolved]
  - Hypokalaemia [Recovered/Resolved]
